FAERS Safety Report 5830135-8 (Version None)
Quarter: 2008Q3

REPORT INFORMATION
  Report Type: 
  Country: None (occurrence: None)
  Receive Date: 20080801
  Receipt Date: 20080723
  Transmission Date: 20090109
  Serious: Yes (Hospitalization)
  Sender: FDA-Public Use
  Company Number: US-AMGEN-QUU296982

PATIENT
  Sex: Female

DRUGS (2)
  1. ENBREL [Suspect]
     Indication: RHEUMATOID ARTHRITIS
     Route: 058
     Dates: start: 20051201
  2. METHOTREXATE [Concomitant]
     Route: 048

REACTIONS (5)
  - ACTIVITIES OF DAILY LIVING IMPAIRED [None]
  - BACK PAIN [None]
  - FALL [None]
  - MYOCARDITIS [None]
  - URINARY TRACT INFECTION [None]
